FAERS Safety Report 7484153-7 (Version None)
Quarter: 2011Q2

REPORT INFORMATION
  Report Type: 
  Country: None (occurrence: None)
  Receive Date: 20110517
  Receipt Date: 20110504
  Transmission Date: 20111010
  Serious: Yes (Death, Other)
  Sender: FDA-Public Use
  Company Number: CA-ELI_LILLY_AND_COMPANY-CA201105000954

PATIENT
  Sex: Male

DRUGS (4)
  1. ZYPREXA [Suspect]
     Dosage: 20 MG, EACH EVENING
  2. RISPERDAL [Concomitant]
     Dosage: UNK
  3. LORAZEPAM [Concomitant]
  4. ZYPREXA [Suspect]
     Indication: SCHIZOPHRENIA
     Dosage: 10 MG, EACH EVENING
     Dates: start: 20000629

REACTIONS (5)
  - ALANINE AMINOTRANSFERASE INCREASED [None]
  - DIABETIC HYPEROSMOLAR COMA [None]
  - DIABETES MELLITUS [None]
  - ENZYME ABNORMALITY [None]
  - HEPATIC STEATOSIS [None]
